FAERS Safety Report 9354629 (Version 4)
Quarter: 2013Q3

REPORT INFORMATION
  Report Type: Spontaneous
  Country: US (occurrence: US)
  Receive Date: 20130618
  Receipt Date: 20130722
  Transmission Date: 20140515
  Serious: No
  Sender: FDA-Public Use
  Company Number: US-009507513-1306USA007008

PATIENT
  Age: 26 Year
  Sex: Female
  Weight: 99.77 kg

DRUGS (2)
  1. IMPLANON [Suspect]
     Indication: CONTRACEPTION
     Dosage: 1 ROD
     Route: 059
     Dates: start: 20100517, end: 20130612
  2. IMPLANON [Suspect]
     Dosage: 1 ROD
     Route: 059
     Dates: start: 20130612

REACTIONS (2)
  - Medical device complication [Recovered/Resolved]
  - Medical device complication [Not Recovered/Not Resolved]
